FAERS Safety Report 24668439 (Version 1)
Quarter: 2024Q4

REPORT INFORMATION
  Report Type: Report from Study
  Country: US (occurrence: US)
  Receive Date: 20241127
  Receipt Date: 20241127
  Transmission Date: 20250115
  Serious: Yes (Hospitalization, Other)
  Sender: ROCHE
  Company Number: US-ROCHE-10000128434

PATIENT
  Age: 66 Year
  Sex: Female

DRUGS (1)
  1. RITUXAN [Suspect]
     Active Substance: RITUXIMAB
     Indication: Relapsing multiple sclerosis
     Route: 065

REACTIONS (11)
  - Nasopharyngitis [Unknown]
  - Wrist fracture [Unknown]
  - Multiple sclerosis [Unknown]
  - Peroneal nerve palsy [Unknown]
  - Weight increased [Unknown]
  - Influenza [Unknown]
  - Fall [Unknown]
  - Nausea [Unknown]
  - Dry mouth [Unknown]
  - Monoplegia [Unknown]
  - Off label use [Unknown]
